FAERS Safety Report 18600115 (Version 3)
Quarter: 2022Q2

REPORT INFORMATION
  Report Type: Spontaneous
  Country: PR (occurrence: PR)
  Receive Date: 20201210
  Receipt Date: 20220401
  Transmission Date: 20220720
  Serious: No
  Sender: FDA-Public Use
  Company Number: PR-PFIZER INC-2020401055

PATIENT
  Age: 13 Year
  Sex: Male
  Weight: 54.422 kg

DRUGS (1)
  1. GENOTROPIN [Suspect]
     Active Substance: SOMATROPIN
     Indication: Blood growth hormone abnormal
     Dosage: 2.8 MG (2.8MG 6 DAYS A WK/ 2.8 MG ONCE DAILY INJECTIONS SIX TIMES PER WEEK)

REACTIONS (1)
  - Injection site pain [Unknown]
